FAERS Safety Report 18064900 (Version 1)
Quarter: 2020Q3

REPORT INFORMATION
  Report Type: Spontaneous
  Country: US (occurrence: US)
  Receive Date: 20200723
  Receipt Date: 20200723
  Transmission Date: 20201103
  Serious: Yes (Other)
  Sender: FDA-Public Use
  Company Number: None

PATIENT
  Age: 73 Year
  Sex: Female
  Weight: 80.55 kg

DRUGS (4)
  1. EMGALITY [Suspect]
     Active Substance: GALCANEZUMAB-GNLM
     Indication: MIGRAINE
     Dosage: ?          OTHER ROUTE:INJECTED IN STOMACH AREA?
  2. IRBESARTAN. [Concomitant]
     Active Substance: IRBESARTAN
  3. VITAMIN D [Concomitant]
     Active Substance: VITAMIN D NOS
  4. SYNTHROID [Concomitant]
     Active Substance: LEVOTHYROXINE SODIUM

REACTIONS (13)
  - Arthralgia [None]
  - Skin burning sensation [None]
  - Constipation [None]
  - Oedema peripheral [None]
  - Rash [None]
  - Urinary incontinence [None]
  - Therapeutic product effect decreased [None]
  - Weight increased [None]
  - Dyspnoea [None]
  - Flatulence [None]
  - Blood pressure increased [None]
  - Anal incontinence [None]
  - Gastritis [None]

NARRATIVE: CASE EVENT DATE: 20200106
